FAERS Safety Report 19199362 (Version 1)
Quarter: 2021Q2

REPORT INFORMATION
  Report Type: Spontaneous
  Country: US (occurrence: US)
  Receive Date: 20210429
  Receipt Date: 20210429
  Transmission Date: 20210717
  Serious: No
  Sender: FDA-Public Use
  Company Number: None

PATIENT
  Age: 36 Year
  Sex: Male

DRUGS (4)
  1. MESALAMINE. [Concomitant]
     Active Substance: MESALAMINE
     Dates: start: 20210415
  2. GILENYA [Suspect]
     Active Substance: FINGOLIMOD HYDROCHLORIDE
     Indication: MULTIPLE SCLEROSIS
     Route: 048
     Dates: start: 20200728
  3. MESALAMINE. [Concomitant]
     Active Substance: MESALAMINE
     Dates: start: 20210114
  4. MESALAMINE. [Concomitant]
     Active Substance: MESALAMINE
     Dates: start: 20201024

REACTIONS (1)
  - Fatigue [None]

NARRATIVE: CASE EVENT DATE: 20210429
